FAERS Safety Report 7409507-6 (Version None)
Quarter: 2011Q2

REPORT INFORMATION
  Report Type: 
  Country: None (occurrence: None)
  Receive Date: 20110407
  Receipt Date: 20110407
  Transmission Date: 20111010
  Serious: Yes (Hospitalization)
  Sender: FDA-Public Use
  Company Number: None

PATIENT
  Age: 53 Year
  Sex: Male

DRUGS (2)
  1. MORPHINE [Suspect]
     Indication: PAIN
     Dosage: 200 MG TID PO
     Route: 048
     Dates: start: 20110301, end: 20110315
  2. OXYCODONE [Suspect]
     Indication: PAIN
     Dosage: 60 MG PRN PO
     Route: 048
     Dates: start: 20100706, end: 20110315

REACTIONS (4)
  - VOMITING [None]
  - DRUG ADMINISTRATION ERROR [None]
  - DEHYDRATION [None]
  - CONFUSIONAL STATE [None]
